FAERS Safety Report 7570316-9 (Version None)
Quarter: 2011Q2

REPORT INFORMATION
  Report Type: 
  Country: None (occurrence: None)
  Receive Date: 20110624
  Receipt Date: 20110621
  Transmission Date: 20111010
  Serious: Yes (Death, Other)
  Sender: FDA-Public Use
  Company Number: JP-GENZYME-THYM-1001923

PATIENT
  Age: 7 Year
  Sex: Male
  Weight: 19 kg

DRUGS (13)
  1. SULFAMETHOPRIM [Concomitant]
     Indication: INFECTION PROPHYLAXIS
     Dosage: UNK
     Dates: start: 20100414, end: 20100426
  2. THYMOGLOBULIN [Suspect]
     Indication: BONE MARROW CONDITIONING REGIMEN
     Dosage: 100 MG, QD
     Route: 042
     Dates: start: 20100416, end: 20100416
  3. THYMOGLOBULIN [Suspect]
     Dosage: 100 MG, QD
     Route: 042
     Dates: start: 20100505, end: 20100505
  4. TEICOPLANIN [Concomitant]
     Indication: INFECTION PROPHYLAXIS
     Dosage: UNK
     Dates: start: 20100401, end: 20100416
  5. MICAFUNGIN SODIUM [Concomitant]
     Indication: INFECTION PROPHYLAXIS
     Dosage: UNK
     Dates: start: 20100315, end: 20100514
  6. MELPHALAN HYDROCHLORIDE [Concomitant]
     Indication: BONE MARROW CONDITIONING REGIMEN
     Dosage: UNK
     Dates: start: 20100424, end: 20100425
  7. BIAPENEM [Concomitant]
     Indication: INFECTION PROPHYLAXIS
     Dosage: UNK
     Dates: start: 20100416, end: 20100430
  8. THYMOGLOBULIN [Suspect]
     Dosage: 50 MG, QD
     Route: 042
     Dates: start: 20100423, end: 20100426
  9. TOTAL BODY RADIATION THERAPY [Concomitant]
     Indication: TRANSPLANT
     Dosage: UNK
     Dates: start: 20100426, end: 20100427
  10. FLUDARABINE PHOSPHATE [Concomitant]
     Indication: BONE MARROW CONDITIONING REGIMEN
     Dosage: UNK
     Dates: start: 20100420, end: 20100423
  11. TACROLIMUS [Concomitant]
     Indication: PROPHYLAXIS AGAINST GRAFT VERSUS HOST DISEASE
     Dosage: UNK
     Dates: start: 20100427, end: 20100726
  12. MEROPENEM [Concomitant]
     Indication: INFECTION PROPHYLAXIS
     Dosage: UNK
     Dates: start: 20100401, end: 20100415
  13. PANIPENEM [Concomitant]
     Indication: INFECTION PROPHYLAXIS
     Dosage: UNK
     Dates: start: 20100501, end: 20100507

REACTIONS (5)
  - PYREXIA [None]
  - ACUTE GRAFT VERSUS HOST DISEASE IN SKIN [None]
  - ACUTE LYMPHOCYTIC LEUKAEMIA RECURRENT [None]
  - CYTOMEGALOVIRUS TEST POSITIVE [None]
  - RASH [None]
